FAERS Safety Report 24794817 (Version 1)
Quarter: 2024Q4

REPORT INFORMATION
  Report Type: Spontaneous
  Country: US (occurrence: None)
  Receive Date: 20241231
  Receipt Date: 20241231
  Transmission Date: 20250114
  Serious: No
  Sender: Public
  Company Number: None

PATIENT
  Sex: 0

DRUGS (3)
  1. ATENOLOL [Suspect]
     Active Substance: ATENOLOL
  2. METHIMAZOLE [Suspect]
     Active Substance: METHIMAZOLE
  3. METRONIDAZOLE [Suspect]
     Active Substance: METRONIDAZOLE

REACTIONS (2)
  - Drug interaction [None]
  - Adverse drug reaction [None]
